FAERS Safety Report 20920546 (Version 1)
Quarter: 2022Q2

REPORT INFORMATION
  Report Type: Spontaneous
  Country: AU (occurrence: AU)
  Receive Date: 20220606
  Receipt Date: 20220606
  Transmission Date: 20220721
  Serious: Yes (Hospitalization, Other)
  Sender: FDA-Public Use
  Company Number: AU-BAXTER-2022BAX011469

PATIENT
  Age: 9 Year
  Sex: Male
  Weight: 29.1 kg

DRUGS (10)
  1. CYCLOPHOSPHAMIDE [Suspect]
     Active Substance: CYCLOPHOSPHAMIDE
     Indication: Rhabdomyosarcoma
     Dosage: UNK (1-11 COURSES OF CHEMOTHERAPY)
     Route: 065
     Dates: start: 20210908
  2. CYCLOPHOSPHAMIDE [Suspect]
     Active Substance: CYCLOPHOSPHAMIDE
     Dosage: 1320 MG/M2 (COURSE 12)
     Route: 065
     Dates: start: 20220426, end: 20220426
  3. IRINOTECAN HYDROCHLORIDE [Suspect]
     Active Substance: IRINOTECAN HYDROCHLORIDE
     Indication: Rhabdomyosarcoma
     Dosage: UNK
     Route: 065
     Dates: start: 20210908
  4. IRINOTECAN HYDROCHLORIDE [Suspect]
     Active Substance: IRINOTECAN HYDROCHLORIDE
     Dosage: 0 MG (COURSE 12)
     Route: 065
     Dates: end: 20220408
  5. VINCRISTINE SULFATE [Suspect]
     Active Substance: VINCRISTINE SULFATE
     Indication: Rhabdomyosarcoma
     Dosage: UNK
     Route: 065
     Dates: start: 20210908
  6. VINCRISTINE SULFATE [Suspect]
     Active Substance: VINCRISTINE SULFATE
     Dosage: 0 MG (COURSE 12)
     Route: 065
     Dates: end: 20220408
  7. TEMSIROLIMUS [Suspect]
     Active Substance: TEMSIROLIMUS
     Indication: Rhabdomyosarcoma
     Dosage: UNK (1-11 COURSES OF CHEMOTHERAPY)
     Route: 065
     Dates: start: 20210908
  8. TEMSIROLIMUS [Suspect]
     Active Substance: TEMSIROLIMUS
     Dosage: 17 MG (COURSE 12)
     Route: 065
     Dates: start: 20220502, end: 20220502
  9. DACTINOMYCIN [Suspect]
     Active Substance: DACTINOMYCIN
     Indication: Rhabdomyosarcoma
     Dosage: UNK (1-11 COURSES OF CHEMOTHERAPY)
     Route: 065
     Dates: start: 20210908
  10. DACTINOMYCIN [Suspect]
     Active Substance: DACTINOMYCIN
     Dosage: 1.5 MG (COURSE 12)
     Route: 065
     Dates: start: 20220426, end: 20220426

REACTIONS (4)
  - Epistaxis [Recovered/Resolved]
  - Thrombosis [Unknown]
  - Anxiety [Unknown]
  - Vomiting [Unknown]

NARRATIVE: CASE EVENT DATE: 20220505
